FAERS Safety Report 4466621-5 (Version None)
Quarter: 2004Q3

REPORT INFORMATION
  Report Type: 
  Country: None (occurrence: None)
  Receive Date: 20040928
  Receipt Date: 20040928
  Transmission Date: 20050211
  Serious: Yes (Other)
  Sender: FDA-Public Use
  Company Number: None

PATIENT
  Sex: Female

DRUGS (1)
  1. TERBUTALINE 5MG / GLOBAL MANUF. [Suspect]
     Indication: PREMATURE LABOUR
     Dosage: 5 MG PO Q 4 HRS
     Route: 048
     Dates: start: 20040813

REACTIONS (1)
  - URTICARIA [None]
